FAERS Safety Report 24025239 (Version 1)
Quarter: 2024Q2

REPORT INFORMATION
  Report Type: Report from Study
  Country: CN (occurrence: CN)
  Receive Date: 20240628
  Receipt Date: 20240628
  Transmission Date: 20240715
  Serious: No
  Sender: FDA-Public Use
  Company Number: CN-ROCHE-3208913

PATIENT
  Age: 29 Year
  Sex: Female

DRUGS (1)
  1. ALECENSA [Suspect]
     Active Substance: ALECTINIB HYDROCHLORIDE
     Indication: Non-small cell lung cancer metastatic
     Dosage: 224 CAPSULES/BOX
     Route: 048
     Dates: start: 20201105

REACTIONS (7)
  - Alopecia [Not Recovered/Not Resolved]
  - Menstrual disorder [Recovering/Resolving]
  - Constipation [Unknown]
  - Hypoglycaemia [Unknown]
  - Sunburn [Unknown]
  - Blood bilirubin increased [Not Recovered/Not Resolved]
  - Anaemia [Unknown]

NARRATIVE: CASE EVENT DATE: 20220101
